FAERS Safety Report 22134134 (Version 4)
Quarter: 2023Q2

REPORT INFORMATION
  Report Type: Spontaneous
  Country: JP (occurrence: JP)
  Receive Date: 20230324
  Receipt Date: 20230524
  Transmission Date: 20230722
  Serious: Yes (Death, Life-Threatening, Other)
  Sender: FDA-Public Use
  Company Number: JP-BAXTER-2023BAX016170

PATIENT
  Age: 45 Year
  Sex: Female

DRUGS (11)
  1. DOXORUBICIN [Suspect]
     Active Substance: DOXORUBICIN
     Indication: Acute lymphocytic leukaemia
     Dosage: DAY 4 OF HYPER-CVAD 65 MG
     Route: 041
     Dates: start: 20200528, end: 20200528
  2. CYCLOPHOSPHAMIDE [Suspect]
     Active Substance: CYCLOPHOSPHAMIDE
     Indication: Acute lymphocytic leukaemia
     Dosage: DAY 1 OF HYPER-CVAD, 430 MG/DAY FOR 3 DAYS
     Route: 041
     Dates: start: 20200525, end: 20200525
  3. CYCLOPHOSPHAMIDE [Suspect]
     Active Substance: CYCLOPHOSPHAMIDE
     Dosage: 390 MG/DAY
     Route: 041
     Dates: start: 20200526, end: 20200526
  4. CYCLOPHOSPHAMIDE [Suspect]
     Active Substance: CYCLOPHOSPHAMIDE
     Dosage: 390 MG/DAY
     Route: 041
     Dates: start: 20200527, end: 20200527
  5. VINCRISTINE SULFATE [Suspect]
     Active Substance: VINCRISTINE SULFATE
     Indication: Acute lymphocytic leukaemia
     Dosage: DAY 4 OF HYPER-CVAD 1.8 MG/DAY
     Route: 041
     Dates: start: 20200528, end: 20200528
  6. VINCRISTINE SULFATE [Suspect]
     Active Substance: VINCRISTINE SULFATE
     Dosage: 1.8 MG/DAY
     Route: 041
     Dates: start: 20200604, end: 20200604
  7. DEXAMETHASONE [Suspect]
     Active Substance: DEXAMETHASONE
     Indication: Acute lymphocytic leukaemia
     Dosage: 39.6 MG/BODY FROM DAY 1 TO DAY 4, HYPER-CVAD
     Route: 065
     Dates: start: 20200525, end: 20200528
  8. PREDONINE [Concomitant]
     Active Substance: PREDNISOLONE
     Dosage: 30 MG/DAY FROM THE DAY OF ARRIVAL TO THE HOSPITAL
     Route: 065
     Dates: start: 20200521
  9. PREDONINE [Concomitant]
     Active Substance: PREDNISOLONE
     Dosage: 50 MG/DAY
     Route: 065
     Dates: start: 20200522
  10. GEMEPROST [Concomitant]
     Active Substance: GEMEPROST
     Indication: Foetal death
     Dosage: 1 DOSAGE FORM/DAY SUPPOSITORY
     Route: 067
  11. PLATELETS [Concomitant]
     Active Substance: HUMAN PLATELET, ALLOGENIC
     Indication: Prophylaxis
     Dosage: TRANSFUSED EVERY DAY BEFORE DELIVERY
     Route: 065

REACTIONS (8)
  - Foetal death [Fatal]
  - Pneumonia [Fatal]
  - Pyrexia [Fatal]
  - General physical health deterioration [Fatal]
  - Respiratory disorder [Fatal]
  - Premature rupture of membranes [Fatal]
  - Pancytopenia [Unknown]
  - Maternal exposure during pregnancy [Unknown]

NARRATIVE: CASE EVENT DATE: 20200602
